FAERS Safety Report 25225237 (Version 1)
Quarter: 2025Q2

REPORT INFORMATION
  Report Type: Spontaneous
  Country: CN (occurrence: CN)
  Receive Date: 20250422
  Receipt Date: 20250422
  Transmission Date: 20250716
  Serious: Yes (Other)
  Sender: PFIZER
  Company Number: CN-PFIZER INC-PV202500045731

PATIENT
  Age: 8 Year
  Sex: Male
  Weight: 31 kg

DRUGS (2)
  1. ZITHROMAX [Suspect]
     Active Substance: AZITHROMYCIN DIHYDRATE
     Indication: Pneumonia
     Dosage: 0.3 G, 1X/DAY
     Route: 041
     Dates: start: 20250404, end: 20250409
  2. ZITHROMAX [Suspect]
     Active Substance: AZITHROMYCIN DIHYDRATE
     Indication: Mycoplasma infection

REACTIONS (5)
  - Drug hypersensitivity [Recovering/Resolving]
  - Eyelids pruritus [Recovering/Resolving]
  - Eyelid oedema [Recovering/Resolving]
  - Erythema of eyelid [Recovering/Resolving]
  - Off label use [Unknown]

NARRATIVE: CASE EVENT DATE: 20250404
